FAERS Safety Report 12713049 (Version 1)
Quarter: 2016Q3

REPORT INFORMATION
  Report Type: Spontaneous
  Country: US (occurrence: US)
  Receive Date: 20160902
  Receipt Date: 20160902
  Transmission Date: 20161109
  Serious: No
  Sender: FDA-Public Use
  Company Number: US-009507513-1609USA000352

PATIENT
  Age: 57 Year
  Sex: Male

DRUGS (2)
  1. SYLATRON [Suspect]
     Active Substance: PEGINTERFERON ALFA-2B
     Dosage: STRENGHT 300 MCG/SDV (444 MCG) 300 MICROGRAM, QW
     Route: 058
     Dates: start: 20160603
  2. SYLATRON [Suspect]
     Active Substance: PEGINTERFERON ALFA-2B
     Indication: SKIN CANCER
     Dosage: STRENGHT 300 MCG/SDV (444 MCG) 300 MICROGRAM, QW
     Route: 058
     Dates: start: 20160603

REACTIONS (1)
  - Dyspnoea [Unknown]

NARRATIVE: CASE EVENT DATE: 201608
